FAERS Safety Report 6470799-1 (Version None)
Quarter: 2009Q4

REPORT INFORMATION
  Report Type: 
  Country: None (occurrence: None)
  Receive Date: 20091203
  Receipt Date: 20090324
  Transmission Date: 20100525
  Serious: No
  Sender: FDA-Public Use
  Company Number: US-ABBOTT-09P-163-0564291-00

PATIENT
  Sex: Female

DRUGS (2)
  1. MERIDIA [Suspect]
     Indication: WEIGHT DECREASED
     Dosage: ONE DOSE ONLY
     Route: 048
     Dates: start: 20090322, end: 20090322
  2. MERIDIA [Suspect]
     Route: 048
     Dates: end: 20090318

REACTIONS (2)
  - HEART RATE INCREASED [None]
  - INSOMNIA [None]
